FAERS Safety Report 7860007-9 (Version None)
Quarter: 2011Q4

REPORT INFORMATION
  Report Type: 
  Country: None (occurrence: None)
  Receive Date: 20111025
  Receipt Date: 20111014
  Transmission Date: 20120403
  Serious: Yes (Other)
  Sender: FDA-Public Use
  Company Number: KAD201108-000007

PATIENT
  Age: 21 Year
  Sex: Female
  Weight: 93.8946 kg

DRUGS (6)
  1. RIBAVIRIN [Suspect]
     Indication: HEPATITIS C
     Dosage: 1200 MG QD, ORAL
     Route: 048
     Dates: start: 20101203, end: 20110513
  2. PEGASYS [Suspect]
     Dosage: 180 MICROGRAM/WEEK
     Dates: end: 20110513
  3. ZOFRAN [Concomitant]
  4. AMBIEN [Concomitant]
  5. NEXIUM [Concomitant]
  6. VYVANSE [Concomitant]

REACTIONS (2)
  - ABORTION SPONTANEOUS [None]
  - MATERNAL EXPOSURE DURING PREGNANCY [None]
